FAERS Safety Report 4634038-6 (Version None)
Quarter: 2005Q2

REPORT INFORMATION
  Report Type: 
  Country: None (occurrence: None)
  Receive Date: 20050413
  Receipt Date: 20050331
  Transmission Date: 20051028
  Serious: Yes (Other)
  Sender: FDA-Public Use
  Company Number: TN-JNJFOC-20050201401

PATIENT
  Sex: Male
  Weight: 30 kg

DRUGS (1)
  1. PROPULSID [Suspect]
     Dosage: NO DRUG GIVEN
     Route: 049

REACTIONS (4)
  - CHEST DISCOMFORT [None]
  - HYPERHIDROSIS [None]
  - PALLOR [None]
  - PALPITATIONS [None]
